FAERS Safety Report 10248678 (Version 1)
Quarter: 2014Q2

REPORT INFORMATION
  Report Type: Spontaneous
  Country: TW (occurrence: None)
  Receive Date: 20140618
  Receipt Date: 20140618
  Transmission Date: 20141212
  Serious: Yes (Death)
  Sender: FDA-Public Use
  Company Number: FK201402320

PATIENT
  Age: 81 Year
  Sex: Female

DRUGS (1)
  1. VANCOMYCIN (MANUFACTURER UNKNOWN) (VANCOMYCIN) (VANCOMYCIN) [Suspect]
     Indication: PNEUMONIA

REACTIONS (4)
  - Stevens-Johnson syndrome [None]
  - Toxic epidermal necrolysis [None]
  - Sepsis [None]
  - Gastrointestinal haemorrhage [None]
